FAERS Safety Report 7300984-8 (Version None)
Quarter: 2010Q4

REPORT INFORMATION
  Report Type: 
  Country: None (occurrence: None)
  Receive Date: 20101230
  Receipt Date: 20100618
  Transmission Date: 20110411
  Serious: Yes (Other)
  Sender: FDA-Public Use
  Company Number: 20100282

PATIENT
  Sex: Female

DRUGS (1)
  1. VENOFER [Suspect]
     Indication: IRON DEFICIENCY ANAEMIA
     Dosage: 500 MG OVER 3 HOURS, INTRAVENOUS
     Route: 042

REACTIONS (3)
  - DYSPNOEA [None]
  - HYPOTENSION [None]
  - PARAESTHESIA [None]
